FAERS Safety Report 8538567-4 (Version None)
Quarter: 2012Q3

REPORT INFORMATION
  Report Type: 
  Country: None (occurrence: None)
  Receive Date: 20120726
  Receipt Date: 20120716
  Transmission Date: 20120928
  Serious: Yes (Other)
  Sender: FDA-Public Use
  Company Number: CA-JNJFOC-20120708307

PATIENT
  Sex: Female
  Weight: 90 kg

DRUGS (6)
  1. VITAMIN B-12 [Concomitant]
     Route: 065
  2. ATIVAN [Concomitant]
     Route: 060
  3. VITAMIN D [Concomitant]
     Route: 048
  4. CALCIUM [Concomitant]
     Route: 048
  5. REMICADE [Suspect]
     Indication: CROHN'S DISEASE
     Route: 042
     Dates: start: 20100831
  6. PANTOPRAZOLE SODIUM [Concomitant]
     Route: 048

REACTIONS (1)
  - CYST [None]
